FAERS Safety Report 4750092-5 (Version None)
Quarter: 2005Q3

REPORT INFORMATION
  Report Type: 
  Country: None (occurrence: None)
  Receive Date: 20050822
  Receipt Date: 20050804
  Transmission Date: 20060218
  Serious: Yes (Hospitalization)
  Sender: FDA-Public Use
  Company Number: 8011282

PATIENT
  Age: 64 Year
  Sex: Female
  Weight: 64 kg

DRUGS (5)
  1. KEPPRA [Suspect]
     Indication: EPILEPSY
     Dosage: 1000 MG 1/D PO
     Route: 048
     Dates: start: 20050512, end: 20050703
  2. TEMODAL [Suspect]
     Indication: GLIOBLASTOMA
     Dosage: 120 MG /D PO
     Route: 048
     Dates: start: 20050519, end: 20050617
  3. BACTRIM [Suspect]
     Indication: PROPHYLAXIS
     Dosage: 3 DF 3/W PO
     Route: 048
     Dates: start: 20050519, end: 20050602
  4. URBANYL [Concomitant]
  5. FORTECORTIN [Concomitant]

REACTIONS (4)
  - DRUG TOXICITY [None]
  - GLIOBLASTOMA [None]
  - PANCYTOPENIA [None]
  - TOXIC SKIN ERUPTION [None]
